FAERS Safety Report 9514712 (Version 1)
Quarter: 2013Q1

REPORT INFORMATION
  Report Type: Spontaneous
  Country: US (occurrence: None)
  Receive Date: 20130305
  Receipt Date: 20130305
  Transmission Date: 20140127
  Serious: Yes (Other)
  Sender: FDA-Public Use
  Company Number: 163-21880-12112768

PATIENT
  Age: 61 Year
  Sex: Female
  Weight: 55.79 kg

DRUGS (8)
  1. REVLIMID (LENALIDOMIDE) (25 MILLIGRAM, CAPSULES) [Suspect]
     Indication: PLASMA CELL MYELOMA
     Dosage: 25 MG, 1 IN 1 D, PO
     Route: 048
     Dates: start: 20110118
  2. ACYCLOVIR (ACICLOVIR) (CAPSULES) [Concomitant]
  3. ASPIRIN (ACETYLSALICYLIC ACID) (UNKNOWN) (ACETYLSALICYLIC ACID) [Concomitant]
  4. CYTOXAN (CYCLOPHOSPHAMIDE) (UNKNOWN) [Concomitant]
  5. FENTANYL (FENTANYL) (UNKNOWN) (FENTANYL) [Concomitant]
  6. FOLIC ACID (FOLIC ACID) (CAPSULES) [Concomitant]
  7. SYNTHROID (LEVOTHYROXINE SODIUM) (UNKNOWN) [Concomitant]
  8. ZOMETA (ZOLEDRONIC ACID) (UNKNOWN) [Concomitant]

REACTIONS (2)
  - Nausea [None]
  - Vomiting [None]
